FAERS Safety Report 9179142 (Version 1)
Quarter: 2012Q4

REPORT INFORMATION
  Report Type: 
  Country: DE (occurrence: DE)
  Receive Date: 20121029
  Receipt Date: 20121029
  Transmission Date: 20130627
  Serious: Yes (Other)
  Sender: FDA-Public Use
  Company Number: DE-ROCHE-1149901

PATIENT

DRUGS (2)
  1. RITUXIMAB [Suspect]
     Indication: WEGENER^S GRANULOMATOSIS
     Route: 065
  2. ADALIMUMAB [Suspect]
     Indication: WEGENER^S GRANULOMATOSIS
     Route: 065

REACTIONS (1)
  - Hepatotoxicity [Unknown]
